FAERS Safety Report 20810626 (Version 1)
Quarter: 2022Q2

REPORT INFORMATION
  Report Type: Spontaneous
  Country: IN (occurrence: IN)
  Receive Date: 20220510
  Receipt Date: 20220510
  Transmission Date: 20220720
  Serious: Yes (Other)
  Sender: FDA-Public Use
  Company Number: IN-NOVARTISPH-NVSC2022IN107690

PATIENT
  Age: 90 Year

DRUGS (1)
  1. BROLUCIZUMAB [Suspect]
     Active Substance: BROLUCIZUMAB
     Indication: Retinal vein occlusion
     Dosage: 0.05 ML, QMO
     Route: 047
     Dates: start: 202202

REACTIONS (2)
  - Eye inflammation [Not Recovered/Not Resolved]
  - Off label use [Not Recovered/Not Resolved]
